FAERS Safety Report 6602716-5 (Version None)
Quarter: 2010Q1

REPORT INFORMATION
  Report Type: 
  Country: None (occurrence: None)
  Receive Date: 20100218
  Receipt Date: 20100203
  Transmission Date: 20100710
  Serious: Yes (Hospitalization, Other)
  Sender: FDA-Public Use
  Company Number: 530#6#2008-00021

PATIENT
  Sex: Male
  Weight: 96 kg

DRUGS (8)
  1. ROTIGOTINE (NEUPRO-PATCH -DOSE-UNKNOWN) [Suspect]
     Indication: PARKINSON'S DISEASE
     Dosage: SEE IMAGE
     Route: 062
     Dates: start: 20080404, end: 20080411
  2. ROTIGOTINE (NEUPRO-PATCH -DOSE-UNKNOWN) [Suspect]
     Indication: PARKINSON'S DISEASE
     Dosage: SEE IMAGE
     Route: 062
     Dates: start: 20080412, end: 20080519
  3. ROTIGOTINE (NEUPRO-PATCH -DOSE-UNKNOWN) [Suspect]
     Indication: PARKINSON'S DISEASE
     Dosage: SEE IMAGE
     Route: 062
     Dates: start: 20080520, end: 20080701
  4. PREDNISOLONE [Concomitant]
  5. FLECAINIDE [Concomitant]
  6. ACETYLSALICYLIC ACID [Concomitant]
  7. DOXEPIN HCL [Concomitant]
  8. OMEPRAZOLE [Concomitant]

REACTIONS (2)
  - HAEMOGLOBIN DECREASED [None]
  - PANCYTOPENIA [None]
